FAERS Safety Report 10229998 (Version 1)
Quarter: 2014Q2

REPORT INFORMATION
  Report Type: Spontaneous
  Country: US (occurrence: None)
  Receive Date: 20140610
  Receipt Date: 20140610
  Transmission Date: 20141212
  Serious: Yes (Other)
  Sender: FDA-Public Use
  Company Number: None

PATIENT
  Age: 64 Year
  Sex: Female

DRUGS (2)
  1. SOVALDI 400 MG [Suspect]
     Indication: HEPATITIS C
     Route: 048
     Dates: start: 20140513
  2. RIBASPHERE 200 MG TABLET THREE RIVERS PHARMACEUTICALS [Suspect]
     Indication: HEPATITIS C
     Dosage: 600 AM/400 PM 5 TABS DAILY ORAL
     Route: 048
     Dates: start: 20140513

REACTIONS (1)
  - Rash [None]
